FAERS Safety Report 5350417-6 (Version None)
Quarter: 2007Q2

REPORT INFORMATION
  Report Type: 
  Country: None (occurrence: None)
  Receive Date: 20070605
  Receipt Date: 20070605
  Transmission Date: 20071010
  Serious: Yes (Disabling, Other)
  Sender: FDA-Public Use
  Company Number: None

PATIENT
  Age: 18 Year
  Sex: Male
  Weight: 59.4212 kg

DRUGS (1)
  1. EFFEXOR XR [Suspect]
     Dosage: 300 MG ONCE DAILY PO
     Route: 048
     Dates: start: 20070115, end: 20070315

REACTIONS (3)
  - ERECTILE DYSFUNCTION [None]
  - LOSS OF LIBIDO [None]
  - ORGASM ABNORMAL [None]
